FAERS Safety Report 5436060-9 (Version None)
Quarter: 2007Q3

REPORT INFORMATION
  Report Type: 
  Country: None (occurrence: None)
  Receive Date: 20070831
  Receipt Date: 20070822
  Transmission Date: 20080115
  Serious: Yes (Hospitalization, Disabling)
  Sender: FDA-Public Use
  Company Number: DE-AVENTIS-200712220DE

PATIENT
  Sex: Male

DRUGS (2)
  1. LANTUS [Suspect]
     Indication: DIABETES MELLITUS
     Dosage: DOSE: NOT REPORTED
     Route: 058
     Dates: start: 20010701
  2. INSULIN NOS [Concomitant]
     Indication: DIABETES MELLITUS
     Dosage: DOSE: NOT REPORTED
     Route: 058
     Dates: end: 20010701

REACTIONS (8)
  - BLOOD ALKALINE PHOSPHATASE INCREASED [None]
  - DRUG RESISTANCE [None]
  - INJECTION SITE INDURATION [None]
  - INJECTION SITE PAIN [None]
  - LEG AMPUTATION [None]
  - MALAISE [None]
  - MALIGNANT FIBROUS HISTIOCYTOMA [None]
  - OEDEMA PERIPHERAL [None]
